FAERS Safety Report 6679917-3 (Version None)
Quarter: 2010Q2

REPORT INFORMATION
  Report Type: 
  Country: None (occurrence: None)
  Receive Date: 20100413
  Receipt Date: 20100407
  Transmission Date: 20101027
  Serious: Yes (Other)
  Sender: FDA-Public Use
  Company Number: US-JNJFOC-20100401992

PATIENT
  Sex: Female
  Weight: 86.18 kg

DRUGS (10)
  1. REMICADE [Suspect]
     Indication: CROHN'S DISEASE
     Route: 042
  2. LYRICA [Concomitant]
     Indication: FIBROMYALGIA
  3. CYMBALTA [Concomitant]
     Indication: FIBROMYALGIA
  4. TOPAMAX [Concomitant]
     Indication: MIGRAINE
  5. SINGULAIR [Concomitant]
     Indication: SEASONAL ALLERGY
  6. VERAPAMIL [Concomitant]
     Indication: HYPERTENSION
  7. LISINOPRIL [Concomitant]
     Indication: HYPERTENSION
  8. ENTOCORT EC [Concomitant]
     Indication: CROHN'S DISEASE
  9. ASACOL [Concomitant]
     Indication: CROHN'S DISEASE
  10. ESTRADIOL [Concomitant]
     Indication: HORMONE REPLACEMENT THERAPY

REACTIONS (4)
  - DYSPNOEA [None]
  - OEDEMA PERIPHERAL [None]
  - PAIN IN EXTREMITY [None]
  - SLEEP APNOEA SYNDROME [None]
